FAERS Safety Report 12380412 (Version 1)
Quarter: 2016Q2

REPORT INFORMATION
  Report Type: Spontaneous
  Country: US (occurrence: US)
  Receive Date: 20160518
  Receipt Date: 20160518
  Transmission Date: 20160815
  Serious: No
  Sender: FDA-Public Use
  Company Number: US-PFIZER INC-2016234138

PATIENT
  Sex: Female

DRUGS (2)
  1. ALPRAZOLAM. [Suspect]
     Active Substance: ALPRAZOLAM
     Indication: MUSCLE SPASMS
  2. ALPRAZOLAM. [Suspect]
     Active Substance: ALPRAZOLAM
     Indication: TREMOR
     Dosage: 1 MG, UNK

REACTIONS (3)
  - Drug ineffective for unapproved indication [Unknown]
  - Product colour issue [Unknown]
  - Product odour abnormal [Unknown]
